FAERS Safety Report 9388748 (Version 2)
Quarter: 2013Q3

REPORT INFORMATION
  Report Type: Spontaneous
  Country: JP (occurrence: JP)
  Receive Date: 20130708
  Receipt Date: 20130731
  Transmission Date: 20140515
  Serious: Yes (Other)
  Sender: FDA-Public Use
  Company Number: JP-GLAXOSMITHKLINE-B0900056A

PATIENT
  Age: 50 Year
  Sex: Female

DRUGS (3)
  1. HEPSERA 10 [Suspect]
     Indication: CHRONIC HEPATITIS B
     Dosage: 10MG PER DAY
     Route: 048
  2. ZEFIX 100 [Suspect]
     Indication: CHRONIC HEPATITIS B
     Dosage: 100MG PER DAY
     Route: 048
  3. BARACLUDE [Concomitant]
     Indication: CHRONIC HEPATITIS B
     Dosage: 1MG PER DAY
     Route: 048

REACTIONS (3)
  - Blood alkaline phosphatase increased [Recovered/Resolved]
  - Hepatic function abnormal [Recovered/Resolved]
  - Drug resistance [Unknown]
